FAERS Safety Report 12857780 (Version 1)
Quarter: 2016Q4

REPORT INFORMATION
  Report Type: Spontaneous
  Country: US (occurrence: US)
  Receive Date: 20161018
  Receipt Date: 20161018
  Transmission Date: 20170207
  Serious: No
  Sender: FDA-Public Use
  Company Number: US-PERRIGO-16US000901

PATIENT
  Age: 59 Year
  Sex: Male
  Weight: 99.77 kg

DRUGS (2)
  1. ATORVASTATIN [Concomitant]
     Active Substance: ATORVASTATIN
     Indication: BLOOD CHOLESTEROL INCREASED
     Dosage: UNK
     Route: 065
     Dates: start: 2014
  2. NICOTINE POLACRILEX [Suspect]
     Active Substance: NICOTINE
     Indication: WRONG DRUG ADMINISTERED
     Dosage: 8 MG, SINGLE
     Route: 048
     Dates: start: 20160126, end: 20160126

REACTIONS (2)
  - Expired product administered [Recovered/Resolved]
  - Wrong drug administered [Recovered/Resolved]

NARRATIVE: CASE EVENT DATE: 20160126
